FAERS Safety Report 19706145 (Version 1)
Quarter: 2021Q3

REPORT INFORMATION
  Report Type: Report from Study
  Country: None (occurrence: US)
  Receive Date: 20210817
  Receipt Date: 20210817
  Transmission Date: 20211014
  Serious: Yes (Other)
  Sender: FDA-Public Use
  Company Number: US-ABBVIE-21K-163-4033676-00

PATIENT
  Sex: Female

DRUGS (1)
  1. HUMIRA [Suspect]
     Active Substance: ADALIMUMAB
     Indication: RHEUMATOID ARTHRITIS
     Dosage: CITRATE FREE
     Route: 058

REACTIONS (6)
  - Carpal tunnel syndrome [Unknown]
  - Tendonitis [Not Recovered/Not Resolved]
  - Injection site mass [Recovering/Resolving]
  - Hypoaesthesia [Not Recovered/Not Resolved]
  - Injection site erythema [Recovering/Resolving]
  - Carpal tunnel syndrome [Not Recovered/Not Resolved]
